FAERS Safety Report 10372398 (Version 1)
Quarter: 2014Q3

REPORT INFORMATION
  Report Type: Spontaneous
  Country: US (occurrence: US)
  Receive Date: 20140808
  Receipt Date: 20140808
  Transmission Date: 20150326
  Serious: No
  Sender: FDA-Public Use
  Company Number: US-BRISTOL-MYERS SQUIBB COMPANY-20940524

PATIENT
  Age: 48 Year
  Sex: Male

DRUGS (1)
  1. SPRYCEL [Suspect]
     Active Substance: DASATINIB
     Indication: CHRONIC MYELOID LEUKAEMIA
     Dosage: 70MG: 3P6004L EXP:30-JUN-2016?20MG: 3J75331E,3J75331C, EXP: 31-OCT-2016
     Dates: start: 20131112

REACTIONS (3)
  - Skin disorder [Unknown]
  - Pruritus [Unknown]
  - Rash [Unknown]
